FAERS Safety Report 18579158 (Version 1)
Quarter: 2020Q4

REPORT INFORMATION
  Report Type: Spontaneous
  Country: PL (occurrence: PL)
  Receive Date: 20201204
  Receipt Date: 20201204
  Transmission Date: 20210114
  Serious: Yes (Life-Threatening, Hospitalization)
  Sender: FDA-Public Use
  Company Number: NVSC2020PL321480

PATIENT
  Age: 60 Year
  Sex: Female
  Weight: 72 kg

DRUGS (1)
  1. CARBOPLATIN. [Suspect]
     Active Substance: CARBOPLATIN
     Indication: OVARIAN CANCER
     Dosage: UNK, DOSE: AUC =5
     Route: 042
     Dates: start: 20180713, end: 20180713

REACTIONS (4)
  - Respiratory arrest [Unknown]
  - Loss of consciousness [Unknown]
  - Vomiting [Unknown]
  - Pulse absent [Unknown]

NARRATIVE: CASE EVENT DATE: 20180713
